FAERS Safety Report 24554715 (Version 3)
Quarter: 2024Q4

REPORT INFORMATION
  Report Type: Report from Study
  Country: AR (occurrence: AR)
  Receive Date: 20241028
  Receipt Date: 20241224
  Transmission Date: 20250114
  Serious: Yes (Hospitalization, Other)
  Sender: JOHNSON AND JOHNSON
  Company Number: AR-JNJFOC-20241073013

PATIENT
  Age: 80 Year
  Sex: Female
  Weight: 70 kg

DRUGS (3)
  1. SIMPONI [Suspect]
     Active Substance: GOLIMUMAB
     Indication: Rheumatoid arthritis
     Route: 058
     Dates: start: 20220207
  2. OXAGESIC [Concomitant]
  3. TAFIROL [PARACETAMOL] [Concomitant]

REACTIONS (7)
  - Pneumonia [Recovering/Resolving]
  - Dizziness [Not Recovered/Not Resolved]
  - Gastritis [Not Recovered/Not Resolved]
  - Urinary tract infection [Not Recovered/Not Resolved]
  - Paraesthesia [Unknown]
  - Localised infection [Unknown]
  - Drug ineffective [Unknown]

NARRATIVE: CASE EVENT DATE: 20241001
